FAERS Safety Report 20165916 (Version 3)
Quarter: 2021Q4

REPORT INFORMATION
  Report Type: Spontaneous
  Country: US (occurrence: US)
  Receive Date: 20211209
  Receipt Date: 20211228
  Transmission Date: 20220304
  Serious: Yes (Hospitalization, Other)
  Sender: FDA-Public Use
  Company Number: US-MALLINCKRODT-T202105333

PATIENT
  Sex: Female
  Weight: 4 kg

DRUGS (3)
  1. H.P. ACTHAR [Suspect]
     Active Substance: CORTICOTROPIN
     Indication: Infantile spasms
     Dosage: 0.09 MILLILITER, QD
     Route: 030
     Dates: start: 20211122, end: 2021
  2. H.P. ACTHAR [Suspect]
     Active Substance: CORTICOTROPIN
     Dosage: 0.03 MILLILITER, QD
     Route: 030
     Dates: start: 202112, end: 20211220
  3. KEPPRA [Concomitant]
     Active Substance: LEVETIRACETAM
     Indication: Infantile spasms
     Dosage: UNK
     Route: 065

REACTIONS (12)
  - Oxygen saturation abnormal [Unknown]
  - Seizure [Not Recovered/Not Resolved]
  - Dermatitis diaper [Not Recovered/Not Resolved]
  - Nasal congestion [Unknown]
  - Teething [Unknown]
  - Nasopharyngitis [Unknown]
  - Irritability [Not Recovered/Not Resolved]
  - Rash erythematous [Not Recovered/Not Resolved]
  - Swelling face [Not Recovered/Not Resolved]
  - Candida infection [Not Recovered/Not Resolved]
  - Diarrhoea [Not Recovered/Not Resolved]
  - Drug ineffective [Not Recovered/Not Resolved]

NARRATIVE: CASE EVENT DATE: 20210101
